FAERS Safety Report 10017711 (Version 1)
Quarter: 2014Q1

REPORT INFORMATION
  Report Type: Spontaneous
  Country: US (occurrence: US)
  Receive Date: 20140318
  Receipt Date: 20140318
  Transmission Date: 20141002
  Serious: No
  Sender: FDA-Public Use
  Company Number: US-BRISTOL-MYERS SQUIBB COMPANY-17448622

PATIENT
  Sex: 0

DRUGS (1)
  1. CETUXIMAB [Suspect]

REACTIONS (2)
  - Drug administration error [Unknown]
  - Blood pressure decreased [Unknown]
